FAERS Safety Report 10328687 (Version 1)
Quarter: 2014Q3

REPORT INFORMATION
  Report Type: Spontaneous
  Country: US (occurrence: None)
  Receive Date: 20140718
  Receipt Date: 20140718
  Transmission Date: 20150326
  Serious: Yes (Death)
  Sender: FDA-Public Use
  Company Number: None

PATIENT
  Age: 86 Year
  Sex: Female
  Weight: 59.1 kg

DRUGS (1)
  1. XARELTO [Suspect]
     Active Substance: RIVAROXABAN

REACTIONS (12)
  - Haemoglobin decreased [None]
  - Thoracostomy [None]
  - Oxygen saturation decreased [None]
  - Pleural effusion [None]
  - Rib fracture [None]
  - Respiratory failure [None]
  - Bronchial secretion retention [None]
  - Surgical procedure repeated [None]
  - Fall [None]
  - Haemothorax [None]
  - Haematocrit decreased [None]
  - Pulmonary contusion [None]

NARRATIVE: CASE EVENT DATE: 20140512
